FAERS Safety Report 5375713-8 (Version None)
Quarter: 2007Q2

REPORT INFORMATION
  Report Type: 
  Country: None (occurrence: None)
  Receive Date: 20070629
  Receipt Date: 20070621
  Transmission Date: 20071010
  Serious: Yes (Hospitalization, Other)
  Sender: FDA-Public Use
  Company Number: IT-GENENTECH-243380

PATIENT
  Age: 51 Year
  Sex: Male

DRUGS (5)
  1. RITUXIMAB [Suspect]
     Indication: NON-HODGKIN'S LYMPHOMA
     Dosage: 375 MG/M2, Q2W
     Dates: end: 20051001
  2. CYCLOPHOSPHAMIDE [Concomitant]
     Indication: NON-HODGKIN'S LYMPHOMA
     Dosage: 750 MG/M2, UNK
     Dates: start: 20050801, end: 20051001
  3. DOXORUBICIN HCL [Concomitant]
     Indication: NON-HODGKIN'S LYMPHOMA
     Dosage: 50 MG/M2, UNK
     Dates: start: 20050801, end: 20051001
  4. VINCRISTINE [Concomitant]
     Indication: NON-HODGKIN'S LYMPHOMA
     Dosage: 1.4 MG/M2, UNK
     Dates: start: 20050801, end: 20051001
  5. METHYLPREDNISOLONE [Concomitant]
     Indication: NON-HODGKIN'S LYMPHOMA
     Dosage: 100 MG, UNK
     Dates: start: 20050801, end: 20051001

REACTIONS (1)
  - GUILLAIN-BARRE SYNDROME [None]
